FAERS Safety Report 4549191-2 (Version None)
Quarter: 2005Q1

REPORT INFORMATION
  Report Type: 
  Country: None (occurrence: None)
  Receive Date: 20050111
  Receipt Date: 20050103
  Transmission Date: 20050727
  Serious: Yes (Death, Hospitalization)
  Sender: FDA-Public Use
  Company Number: US-JNJFOC-20050100702

PATIENT
  Sex: Male

DRUGS (8)
  1. REMICADE [Suspect]
     Route: 042
  2. REMICADE [Suspect]
     Route: 042
  3. REMICADE [Suspect]
     Indication: RHEUMATOID ARTHRITIS
     Route: 042
  4. ADICAN [Concomitant]
     Indication: RHEUMATOID ARTHRITIS
  5. PREDNISONE [Concomitant]
     Indication: RHEUMATOID ARTHRITIS
  6. METHOTREXATE [Concomitant]
     Indication: RHEUMATOID ARTHRITIS
  7. FOLIC ACID [Concomitant]
     Indication: NUTRITIONAL SUPPORT
  8. CELEBREX [Concomitant]
     Indication: RHEUMATOID ARTHRITIS

REACTIONS (6)
  - CHEST X-RAY ABNORMAL [None]
  - CRYPTOCOCCOSIS [None]
  - HEPATOTOXICITY [None]
  - HISTOPLASMOSIS [None]
  - PNEUMOCYSTIS JIROVECI INFECTION [None]
  - STAPHYLOCOCCAL INFECTION [None]
